FAERS Safety Report 9210036 (Version 1)
Quarter: 2013Q2

REPORT INFORMATION
  Report Type: Spontaneous
  Country: US (occurrence: US)
  Receive Date: 20130404
  Receipt Date: 20130404
  Transmission Date: 20140414
  Serious: Yes (Other)
  Sender: FDA-Public Use
  Company Number: US-PFIZER INC-2013106149

PATIENT
  Sex: 0

DRUGS (1)
  1. GEODON [Suspect]
     Dosage: 80 MG, 2X/DAY

REACTIONS (2)
  - Gastric disorder [Unknown]
  - Wrong technique in drug usage process [Unknown]
